FAERS Safety Report 19884605 (Version 1)
Quarter: 2021Q3

REPORT INFORMATION
  Report Type: Spontaneous
  Country: US (occurrence: US)
  Receive Date: 20210924
  Receipt Date: 20210924
  Transmission Date: 20211014
  Serious: Yes (Hospitalization)
  Sender: FDA-Public Use
  Company Number: None

PATIENT
  Age: 73 Year
  Sex: Female
  Weight: 74.7 kg

DRUGS (16)
  1. PANTOPRAZOLE 40 MG INJECTION [Concomitant]
     Dates: start: 20210917, end: 20210922
  2. LIDOCAINE 4% PATCH [Concomitant]
     Active Substance: LIDOCAINE
     Dates: start: 20210917, end: 20210922
  3. REGEN?COV [Suspect]
     Active Substance: CASIRIVIMAB\IMDEVIMAB
  4. LIDOCAINE HCL 20MG/ML [Concomitant]
     Dates: start: 20210919, end: 20210919
  5. SUCCINYLCHOLINEINJECTION [Concomitant]
     Dates: start: 20210919, end: 20210919
  6. OCTREOTIDE 50 MCG INJECTION [Concomitant]
     Dates: start: 20210917, end: 20210917
  7. CEFTRIAXONE. [Concomitant]
     Active Substance: CEFTRIAXONE
     Dates: start: 20210917, end: 20210921
  8. LEVOTHYROXINE 200 MCG [Concomitant]
     Dates: start: 20210917, end: 20210922
  9. MIDODRINE 5 MG [Concomitant]
     Dates: start: 20210917, end: 20210922
  10. PROPOFOL INFUSION 373.5?4,482 MCG/MIN [Concomitant]
     Dates: start: 20210919, end: 20210919
  11. DEXAMETHASONE SODIUM PHOSPHATE. [Concomitant]
     Active Substance: DEXAMETHASONE SODIUM PHOSPHATE
     Dates: start: 20210919, end: 20210919
  12. NACI 0.9% 1,000 ML BOLUS [Concomitant]
     Dates: start: 20210917, end: 20210917
  13. HYDROXYZINE HCL 25 MG [Concomitant]
     Active Substance: HYDROXYZINE HYDROCHLORIDE
     Dates: start: 20210917, end: 20210922
  14. MELATONIN 3 MG [Concomitant]
     Dates: start: 20210917, end: 20210921
  15. ROPINIROLE 4MG [Concomitant]
     Active Substance: ROPINIROLE
     Dates: end: 20210922
  16. TRAZODONE [Concomitant]
     Active Substance: TRAZODONE HYDROCHLORIDE
     Dates: start: 20210918, end: 20210922

REACTIONS (9)
  - Anaemia [None]
  - Cough [None]
  - Thrombocytopenia [None]
  - Hypotension [None]
  - Pallor [None]
  - Gastrointestinal haemorrhage [None]
  - Hypotonia [None]
  - Dizziness [None]
  - Fatigue [None]

NARRATIVE: CASE EVENT DATE: 20210917
